FAERS Safety Report 7552285-0 (Version None)
Quarter: 2011Q2

REPORT INFORMATION
  Report Type: 
  Country: None (occurrence: None)
  Receive Date: 20110616
  Receipt Date: 20050309
  Transmission Date: 20111010
  Serious: Yes (Hospitalization)
  Sender: FDA-Public Use
  Company Number: PHHO2005JP03162

PATIENT
  Sex: Male

DRUGS (8)
  1. BASEN [Concomitant]
     Indication: DIABETES MELLITUS
     Dates: start: 20000401
  2. UNIPHYL [Concomitant]
     Indication: EMPHYSEMA
     Dates: start: 20031216
  3. THEO-DUR [Concomitant]
     Indication: EMPHYSEMA
     Dates: start: 20000301
  4. GLYBURIDE [Concomitant]
     Indication: DIABETES MELLITUS
     Dates: start: 20010926, end: 20020301
  5. LOCHOLEST [Suspect]
     Indication: HYPERCHOLESTEROLAEMIA
     Dosage: 20 MG, QD
     Route: 048
     Dates: start: 20010227, end: 20040607
  6. ACTOS [Concomitant]
     Indication: DIABETES MELLITUS
     Dates: start: 20030610
  7. GLYBURIDE [Concomitant]
     Indication: DIABETES MELLITUS
     Dates: start: 20000401
  8. ACECOL [Concomitant]
     Indication: DIABETIC NEPHROPATHY
     Dates: start: 20011023

REACTIONS (2)
  - RESPIRATORY FAILURE [None]
  - PLEURAL EFFUSION [None]
